FAERS Safety Report 7160220-2 (Version None)
Quarter: 2010Q4

REPORT INFORMATION
  Report Type: 
  Country: None (occurrence: None)
  Receive Date: 20101214
  Receipt Date: 20091130
  Transmission Date: 20110411
  Serious: No
  Sender: FDA-Public Use
  Company Number: US-AMGEN-KDL377616

PATIENT

DRUGS (2)
  1. ENBREL [Suspect]
     Indication: RHEUMATOID ARTHRITIS
     Dosage: 50 MG, QWK
     Route: 058
     Dates: start: 20010814
  2. ADALIMUMAB [Suspect]

REACTIONS (5)
  - DRUG DOSE OMISSION [None]
  - RESPIRATORY TRACT INFECTION [None]
  - SCRATCH [None]
  - WOUND [None]
  - WOUND INFECTION [None]
